FAERS Safety Report 5447237-0 (Version None)
Quarter: 2007Q3

REPORT INFORMATION
  Report Type: 
  Country: None (occurrence: None)
  Receive Date: 20070910
  Receipt Date: 20070829
  Transmission Date: 20080115
  Serious: Yes (Hospitalization)
  Sender: FDA-Public Use
  Company Number: JP-ELI_LILLY_AND_COMPANY-JP200709000517

PATIENT
  Age: 62 Year
  Sex: Female

DRUGS (15)
  1. ZYPREXA [Suspect]
     Indication: MAJOR DEPRESSION
     Dosage: 5 MG, DAILY (1/D)
     Route: 048
  2. ZYPREXA [Suspect]
     Dosage: 10 MG, DAILY (1/D)
     Route: 048
  3. ZYPREXA [Suspect]
     Dosage: 5 MG, DAILY (1/D)
     Route: 048
  4. ZYPREXA [Suspect]
     Dosage: 10 MG, DAILY (1/D)
     Route: 048
  5. ZYPREXA [Suspect]
     Dosage: 5 MG, DAILY (1/D)
     Route: 048
  6. MILNACIPRAN [Concomitant]
     Dosage: 100 MG, DAILY (1/D)
     Route: 048
  7. MAPROTILINE [Concomitant]
     Dosage: 75 MG, DAILY (1/D)
     Route: 048
  8. AMITRIPTYLINE HCL [Concomitant]
     Dosage: 100 MG, DAILY (1/D)
     Route: 048
  9. ETIZOLAM [Concomitant]
     Dosage: 1.5 MG, DAILY (1/D)
     Route: 048
  10. TRIAZOLAM [Concomitant]
     Dosage: 0.125 MG, DAILY (1/D)
     Route: 048
  11. TRIAZOLAM [Concomitant]
     Dosage: 0.25 MG, DAILY (1/D)
     Route: 048
  12. FLUNITRAZEPAM [Concomitant]
     Dosage: 2 MG, DAILY (1/D)
     Route: 048
  13. ESTAZOLAM [Concomitant]
     Dosage: 2 MG, DAILY (1/D)
     Route: 048
  14. LITHIUM CARBONATE [Concomitant]
     Dosage: 200 MG, DAILY (1/D)
     Route: 048
  15. TRAZODONE HCL [Concomitant]
     Dosage: 75 MG, DAILY (1/D)
     Route: 048

REACTIONS (3)
  - MALAISE [None]
  - METASTASES TO CENTRAL NERVOUS SYSTEM [None]
  - SOMNOLENCE [None]
